FAERS Safety Report 9999380 (Version 1)
Quarter: 2014Q1

REPORT INFORMATION
  Report Type: Spontaneous
  Country: US (occurrence: US)
  Receive Date: 20140312
  Receipt Date: 20140312
  Transmission Date: 20141002
  Serious: Yes (Hospitalization)
  Sender: FDA-Public Use
  Company Number: US-ROCHE-1358462

PATIENT
  Age: 71 Year
  Sex: Male

DRUGS (2)
  1. ZELBORAF [Suspect]
     Indication: MALIGNANT MELANOMA
     Route: 065
  2. ZELBORAF [Suspect]
     Indication: COLORECTAL CANCER

REACTIONS (5)
  - Pneumonia [Recovering/Resolving]
  - Hypotension [Unknown]
  - Fungal infection [Not Recovered/Not Resolved]
  - Diarrhoea [Unknown]
  - Blood creatinine abnormal [Recovering/Resolving]
